FAERS Safety Report 8797971 (Version 3)
Quarter: 2015Q2

REPORT INFORMATION
  Report Type: Report from Study
  Country: US (occurrence: US)
  Receive Date: 20120919
  Receipt Date: 20150626
  Transmission Date: 20150821
  Serious: Yes (Death, Hospitalization)
  Sender: FDA-Public Use
  Company Number: US-ROCHE-1124414

PATIENT
  Age: 64 Year
  Sex: Female

DRUGS (18)
  1. DARBEPOETIN ALFA [Concomitant]
     Active Substance: DARBEPOETIN ALFA
     Route: 058
  2. ALOXI [Concomitant]
     Active Substance: PALONOSETRON HYDROCHLORIDE
     Route: 042
  3. 5-FLUOROURACIL [Concomitant]
     Active Substance: FLUOROURACIL
     Route: 065
  4. LEUCOVORIN [Concomitant]
     Active Substance: LEUCOVORIN
     Route: 065
  5. DECADRON [Concomitant]
     Active Substance: DEXAMETHASONE
     Route: 042
  6. AVASTIN [Suspect]
     Active Substance: BEVACIZUMAB
     Indication: METASTASES TO SMALL INTESTINE
  7. HEPARIN [Concomitant]
     Active Substance: HEPARIN SODIUM
     Route: 042
  8. 5-FLUOROURACIL [Concomitant]
     Active Substance: FLUOROURACIL
     Route: 065
  9. LOPERAMIDE HYDROCHLORIDE. [Concomitant]
     Active Substance: LOPERAMIDE HYDROCHLORIDE
     Route: 048
  10. NEULASTA [Concomitant]
     Active Substance: PEGFILGRASTIM
     Route: 065
  11. ARANESP [Concomitant]
     Active Substance: DARBEPOETIN ALFA
     Route: 065
  12. AVASTIN [Suspect]
     Active Substance: BEVACIZUMAB
     Indication: LUNG NEOPLASM MALIGNANT
     Route: 042
     Dates: start: 20070417, end: 20070515
  13. PACLITAXEL. [Concomitant]
     Active Substance: PACLITAXEL
  14. AVASTIN [Suspect]
     Active Substance: BEVACIZUMAB
     Indication: GASTROINTESTINAL CARCINOMA
  15. ATROPINE [Concomitant]
     Active Substance: ATROPINE
     Route: 042
  16. DEXAMETHASONE. [Concomitant]
     Active Substance: DEXAMETHASONE
     Route: 042
  17. POTASSIUM CHLORIDE. [Concomitant]
     Active Substance: POTASSIUM CHLORIDE
     Route: 042
  18. CAMPTOSAR [Concomitant]
     Active Substance: IRINOTECAN HYDROCHLORIDE
     Route: 042

REACTIONS (10)
  - Disease progression [Fatal]
  - Nausea [Unknown]
  - Vomiting [Unknown]
  - Dehydration [Unknown]
  - Off label use [Unknown]
  - Diarrhoea [Unknown]
  - Abdominal pain [Unknown]
  - Anaemia [Unknown]
  - Asthenia [Unknown]
  - Decreased appetite [Unknown]

NARRATIVE: CASE EVENT DATE: 20070630
